FAERS Safety Report 7887807-3 (Version None)
Quarter: 2011Q4

REPORT INFORMATION
  Report Type: 
  Country: None (occurrence: None)
  Receive Date: 20111103
  Receipt Date: 20111018
  Transmission Date: 20120403
  Serious: Yes (Other)
  Sender: FDA-Public Use
  Company Number: TN-AMGEN-TUNSP2011053963

PATIENT
  Age: 72 Year
  Sex: Female

DRUGS (5)
  1. METHOTREXATE [Concomitant]
     Indication: RHEUMATOID ARTHRITIS
     Dosage: UNK
     Dates: end: 20111009
  2. LASIX [Concomitant]
     Indication: HYPERTENSION
     Dosage: UNK
     Dates: end: 20111009
  3. NICARDIPINE HCL [Concomitant]
     Indication: HYPERTENSION
     Dosage: UNK
     Dates: end: 20111009
  4. LEVOTHYROXINE SODIUM [Concomitant]
     Indication: HYPOTHYROIDISM
     Dosage: UNK
     Dates: end: 20111009
  5. ENBREL [Suspect]
     Indication: RHEUMATOID ARTHRITIS
     Dosage: 25 MG, 2X/WEEK
     Route: 058
     Dates: start: 20110801, end: 20111006

REACTIONS (3)
  - DIARRHOEA [None]
  - VOMITING [None]
  - PYREXIA [None]
